FAERS Safety Report 8437650 (Version 3)
Quarter: 2013Q2

REPORT INFORMATION
  Report Type: Report from Study
  Country: US (occurrence: US)
  Receive Date: 20120113
  Receipt Date: 20130625
  Transmission Date: 20140414
  Serious: Yes (Other)
  Sender: FDA-Public Use
  Company Number: PHEH2011US011821

PATIENT
  Age: 19 Year
  Sex: Female
  Weight: 56 kg

DRUGS (2)
  1. ILARIS [Suspect]
     Indication: CHRONIC INFANTILE NEUROLOGICAL CUTANEOUS AND ARTICULAR SYNDROME
     Dosage: 150 MG, FOR EVERY 7 WEEKS
     Route: 058
     Dates: start: 20091101
  2. ILARIS [Suspect]
     Dosage: 1 DF, EVERY 6 WEEKS
     Dates: start: 201001

REACTIONS (12)
  - Infectious mononucleosis [Recovering/Resolving]
  - Chronic infantile neurological cutaneous and articular syndrome [Unknown]
  - Headache [Not Recovered/Not Resolved]
  - Eye pain [Recovered/Resolved]
  - Eye irritation [Not Recovered/Not Resolved]
  - Abdominal pain upper [Not Recovered/Not Resolved]
  - Nausea [Not Recovered/Not Resolved]
  - Arthralgia [Not Recovered/Not Resolved]
  - Drug administration error [Recovered/Resolved]
  - Pharyngitis streptococcal [Unknown]
  - Oropharyngeal pain [Unknown]
  - Tonsillar ulcer [Unknown]
